FAERS Safety Report 7779670-6 (Version None)
Quarter: 2011Q3

REPORT INFORMATION
  Report Type: 
  Country: None (occurrence: None)
  Receive Date: 20110927
  Receipt Date: 20110705
  Transmission Date: 20111222
  Serious: Yes (Other)
  Sender: FDA-Public Use
  Company Number: US-BAYER-201015291NA

PATIENT
  Age: 31 Year
  Sex: Female

DRUGS (41)
  1. OMNISCAN [Suspect]
     Indication: ANGIOGRAM
     Dates: start: 20030922, end: 20030922
  2. OMNISCAN [Suspect]
     Indication: NUCLEAR MAGNETIC RESONANCE IMAGING
  3. OPTIMARK [Suspect]
     Indication: ANGIOGRAM
     Dosage: UNK
     Dates: start: 20030110, end: 20030110
  4. DILANTIN [Concomitant]
     Indication: EPILEPSY
  5. RENAGEL [Concomitant]
  6. COUMADIN [Concomitant]
  7. MAGNEVIST [Suspect]
     Indication: ANGIOGRAM
     Dosage: UNK
     Dates: start: 20070118, end: 20070118
  8. CARDIZEM [Concomitant]
  9. MAGNEVIST [Suspect]
     Indication: NUCLEAR MAGNETIC RESONANCE IMAGING
  10. MULTIHANCE [Suspect]
     Indication: NUCLEAR MAGNETIC RESONANCE IMAGING
  11. ENOXAPARIN [Concomitant]
  12. AMLODIPINE [Concomitant]
  13. NORMODYNE [Concomitant]
     Dosage: 400 MG TID
  14. DIAZEPAM [Concomitant]
  15. IBUPROFEN [Concomitant]
  16. PLENDIL [Concomitant]
  17. VITAMIN K TAB [Concomitant]
  18. PRAVASTATIN [Concomitant]
     Indication: BLOOD CHOLESTEROL INCREASED
  19. PHENYTOIN [Concomitant]
  20. ASPIRIN [Concomitant]
  21. CARDURA [Concomitant]
  22. DEPAKOTE [Concomitant]
  23. OPTIMARK [Suspect]
     Indication: NUCLEAR MAGNETIC RESONANCE IMAGING BRAIN
  24. MULTIHANCE [Suspect]
     Indication: ANGIOGRAM
  25. METOPROLOL TARTRATE [Concomitant]
  26. VICODIN [Concomitant]
  27. LIDOCAINE [Concomitant]
  28. LOVENOX [Concomitant]
  29. METHADONE HCL [Concomitant]
     Indication: PAIN
  30. CLONIDINE [Concomitant]
  31. ACCUPRIL [Concomitant]
     Dosage: 40 MG BID
     Dates: start: 20031209
  32. PREDNISONE [Concomitant]
  33. LAMICTAL [Concomitant]
  34. PROHANCE [Suspect]
     Indication: ANGIOGRAM
  35. PROHANCE [Suspect]
     Indication: NUCLEAR MAGNETIC RESONANCE IMAGING
  36. NORVASC [Concomitant]
     Dosage: 10 MG BID
     Dates: start: 20031209
  37. AMIODARONE HCL [Concomitant]
  38. OPTIMARK [Suspect]
     Indication: NUCLEAR MAGNETIC RESONANCE IMAGING
  39. PROMETHAZINE [Concomitant]
  40. MORPHINE [Concomitant]
  41. HEPARIN [Concomitant]

REACTIONS (21)
  - ATROPHY [None]
  - MUSCULOSKELETAL STIFFNESS [None]
  - NEPHROGENIC SYSTEMIC FIBROSIS [None]
  - SKIN SWELLING [None]
  - SKIN BURNING SENSATION [None]
  - GENERALISED OEDEMA [None]
  - GAIT DISTURBANCE [None]
  - SKIN TIGHTNESS [None]
  - PRURITUS [None]
  - MYALGIA [None]
  - OEDEMA PERIPHERAL [None]
  - PAIN [None]
  - JOINT RANGE OF MOTION DECREASED [None]
  - JOINT CONTRACTURE [None]
  - SKIN HYPERTROPHY [None]
  - PAIN IN EXTREMITY [None]
  - JOINT STIFFNESS [None]
  - ARTHRALGIA [None]
  - SKIN DISCOLOURATION [None]
  - EXFOLIATIVE RASH [None]
  - DRY SKIN [None]
